FAERS Safety Report 22082770 (Version 10)
Quarter: 2023Q2

REPORT INFORMATION
  Report Type: Report from Study
  Country: ES (occurrence: ES)
  Receive Date: 20230310
  Receipt Date: 20230406
  Transmission Date: 20230721
  Serious: Yes (Hospitalization, Other)
  Sender: FDA-Public Use
  Company Number: ES-ABBVIE-4333816

PATIENT
  Age: 70 Year
  Sex: Female

DRUGS (6)
  1. CARBIDOPA\LEVODOPA [Suspect]
     Active Substance: CARBIDOPA\LEVODOPA
     Indication: Parkinson^s disease
     Route: 050
     Dates: start: 20220216
  2. CARBIDOPA\LEVODOPA [Suspect]
     Active Substance: CARBIDOPA\LEVODOPA
  3. RIVASTIGMINE TARTRATE [Concomitant]
     Active Substance: RIVASTIGMINE TARTRATE
     Indication: Behaviour disorder
  4. IBUPROFEN [Suspect]
     Active Substance: IBUPROFEN
     Indication: Back pain
     Route: 048
     Dates: start: 20230306, end: 20230306
  5. SINEMET [Suspect]
     Active Substance: CARBIDOPA\LEVODOPA
     Indication: Product used for unknown indication
     Dosage: FREQUENCY TEXT: AT NIGHT
     Route: 065
  6. ACETAMINOPHEN [Suspect]
     Active Substance: ACETAMINOPHEN
     Indication: Back pain
     Route: 048
     Dates: start: 20230306, end: 20230306

REACTIONS (22)
  - Intentional product misuse [Recovered/Resolved]
  - Dementia [Not Recovered/Not Resolved]
  - Mental impairment [Not Recovered/Not Resolved]
  - Device dislocation [Recovered/Resolved]
  - Discomfort [Unknown]
  - Intentional overdose [Recovered/Resolved]
  - Device use issue [Not Recovered/Not Resolved]
  - Nervousness [Recovered/Resolved]
  - Schizophrenia [Recovered/Resolved]
  - Wrong product administered [Unknown]
  - Dementia [Unknown]
  - Intentional overdose [Recovered/Resolved]
  - Unevaluable event [Unknown]
  - Dementia [Recovered/Resolved]
  - Intentional product misuse [Recovered/Resolved]
  - Aggression [Recovered/Resolved]
  - Stoma site pain [Recovered/Resolved]
  - Dissociation [Recovered/Resolved]
  - Device use issue [Unknown]
  - Device use issue [Unknown]
  - Intentional medical device removal by patient [Unknown]
  - Condition aggravated [Unknown]

NARRATIVE: CASE EVENT DATE: 20230101
